FAERS Safety Report 8791287 (Version 3)
Quarter: 2013Q1

REPORT INFORMATION
  Report Type: Spontaneous
  Country: GB (occurrence: None)
  Receive Date: 20120911
  Receipt Date: 20130124
  Transmission Date: 20140127
  Serious: Yes (Other)
  Sender: FDA-Public Use
  Company Number: GER/UKI/12/0025740

PATIENT
  Sex: Female

DRUGS (2)
  1. LETROZOLE [Suspect]
     Indication: PRODUCT USED FOR UNKNOWN INDICATION
     Route: 048
     Dates: start: 2011
  2. FOSAMAX [Suspect]
     Indication: PRODUCT USED FOR UNKNOWN INDICATION
     Route: 048
     Dates: start: 201108

REACTIONS (10)
  - Monoplegia [None]
  - Bone pain [None]
  - Drug interaction [None]
  - Arthralgia [None]
  - Migraine [None]
  - Myalgia [None]
  - Osteoporosis [None]
  - Aphasia [None]
  - Back pain [None]
  - Spinal compression fracture [None]
